FAERS Safety Report 8481409-6 (Version None)
Quarter: 2012Q3

REPORT INFORMATION
  Report Type: 
  Country: None (occurrence: None)
  Receive Date: 20120702
  Receipt Date: 20120621
  Transmission Date: 20120928
  Serious: Yes (Hospitalization)
  Sender: FDA-Public Use
  Company Number: US-BAYER-2012-018980

PATIENT
  Age: 31 Year
  Sex: Female
  Weight: 70 kg

DRUGS (12)
  1. YAZ [Suspect]
     Indication: PREMENSTRUAL SYNDROME
     Dosage: UNK
     Dates: start: 20081101, end: 20090501
  2. FIBER [Concomitant]
     Dosage: UNK
  3. ZOLOFT [Concomitant]
  4. YAZ [Suspect]
  5. ALLEGRA [Concomitant]
  6. HYDROCODONE [Concomitant]
  7. XENOPEX INHALER [Concomitant]
     Dosage: UNK
  8. AMITIZA [Concomitant]
  9. PROMETHAZINE [Concomitant]
  10. ADVAIR DISKUS 100/50 [Concomitant]
  11. SINGULAIR [Concomitant]
     Dosage: UNK
  12. IBUPROFEN [Concomitant]
     Dosage: UNK

REACTIONS (6)
  - MENORRHAGIA [None]
  - NEURALGIA [None]
  - GALLBLADDER DISORDER [None]
  - CHOLECYSTITIS CHRONIC [None]
  - ABDOMINAL PAIN [None]
  - PAIN [None]
